FAERS Safety Report 21026772 (Version 1)
Quarter: 2022Q2

REPORT INFORMATION
  Report Type: Spontaneous
  Country: US (occurrence: US)
  Receive Date: 20220630
  Receipt Date: 20220630
  Transmission Date: 20220721
  Serious: No
  Sender: FDA-Public Use
  Company Number: US-GLAXOSMITHKLINE-USCH2022022586

PATIENT

DRUGS (1)
  1. LAMISIL [Suspect]
     Active Substance: TERBINAFINE HYDROCHLORIDE
     Indication: Pruritus
     Dosage: UNK
     Dates: start: 20220606

REACTIONS (1)
  - Rash macular [Unknown]

NARRATIVE: CASE EVENT DATE: 20220622
